FAERS Safety Report 5872442-9 (Version None)
Quarter: 2008Q3

REPORT INFORMATION
  Report Type: 
  Country: None (occurrence: None)
  Receive Date: 20080905
  Receipt Date: 20080828
  Transmission Date: 20090109
  Serious: Yes (Other)
  Sender: FDA-Public Use
  Company Number: PHHY2008KR15625

PATIENT
  Sex: Female
  Weight: 64 kg

DRUGS (5)
  1. ZOMETA [Suspect]
     Indication: METASTASES TO BONE
     Dosage: 4 MG PER FOUR WEEKS
     Route: 042
     Dates: start: 20080425, end: 20080701
  2. ZOMETA [Suspect]
     Dosage: UNK
     Dates: start: 20080516
  3. ADRIAMYCIN PFS [Concomitant]
     Dosage: 85 MG, UNK
  4. TAXOTERE [Concomitant]
     Dosage: 127 MG, UNK
  5. DEXAMETHASONE TAB [Concomitant]
     Dosage: 20 MG, UNK

REACTIONS (13)
  - BIOPSY BONE ABNORMAL [None]
  - BONE DISORDER [None]
  - DENTAL OPERATION [None]
  - EXCESSIVE GRANULATION TISSUE [None]
  - GINGIVAL DISORDER [None]
  - GINGIVAL HYPERPLASIA [None]
  - GINGIVAL SWELLING [None]
  - INFLAMMATION [None]
  - LYMPHADENOPATHY [None]
  - OSTEONECROSIS [None]
  - PAIN IN JAW [None]
  - TOOTH DISORDER [None]
  - TYPE IV HYPERSENSITIVITY REACTION [None]
